FAERS Safety Report 22644391 (Version 1)
Quarter: 2023Q2

REPORT INFORMATION
  Report Type: Spontaneous
  Country: CA (occurrence: CA)
  Receive Date: 20230627
  Receipt Date: 20230627
  Transmission Date: 20230722
  Serious: Yes (Other)
  Sender: FDA-Public Use
  Company Number: CA-BEH-2023160225

PATIENT
  Sex: Male

DRUGS (1)
  1. ALBUREX [Suspect]
     Active Substance: ALBUMIN HUMAN
     Indication: Product used for unknown indication
     Dosage: 7 MILLILITER
     Route: 042

REACTIONS (1)
  - Transfusion-related circulatory overload [Recovered/Resolved]
